FAERS Safety Report 18170485 (Version 1)
Quarter: 2020Q3

REPORT INFORMATION
  Report Type: Spontaneous
  Country: CN (occurrence: CN)
  Receive Date: 20200819
  Receipt Date: 20200819
  Transmission Date: 20201103
  Serious: Yes (Hospitalization, Other)
  Sender: FDA-Public Use
  Company Number: CN-PFIZER INC-2020317681

PATIENT
  Age: 83 Year
  Sex: Female

DRUGS (2)
  1. NORVASC [Suspect]
     Active Substance: AMLODIPINE BESYLATE
     Indication: HYPERTENSION
     Dosage: 5 MG, 1X/DAY
     Route: 048
     Dates: start: 20190801, end: 20200802
  2. YI SU [Concomitant]
     Indication: HYPERTENSION
     Dosage: 10 MG, 1X/DAY
     Route: 048
     Dates: start: 20190801, end: 20190801

REACTIONS (6)
  - Cholelithiasis [Recovering/Resolving]
  - Abdominal pain [Recovering/Resolving]
  - Abdominal distension [Recovering/Resolving]
  - Renal cyst [Recovering/Resolving]
  - Nausea [Recovering/Resolving]
  - Cholecystitis chronic [Recovering/Resolving]

NARRATIVE: CASE EVENT DATE: 202008
